FAERS Safety Report 13374606 (Version 1)
Quarter: 2017Q1

REPORT INFORMATION
  Report Type: Spontaneous
  Country: DE (occurrence: DE)
  Receive Date: 20170327
  Receipt Date: 20170327
  Transmission Date: 20170429
  Serious: Yes (Other)
  Sender: FDA-Public Use
  Company Number: DE-TEVA-751673GER

PATIENT
  Age: 72 Year
  Sex: Female

DRUGS (9)
  1. AMIODARON-RATIOPHARM 200 MG TABLETTEN [Suspect]
     Active Substance: AMIODARONE
     Indication: ARRHYTHMIA
     Dosage: 200 MILLIGRAM DAILY;
     Route: 048
     Dates: start: 201703
  2. SIMVASTATIN. [Concomitant]
     Active Substance: SIMVASTATIN
  3. CANDESARTAN 16 MG [Concomitant]
     Active Substance: CANDESARTAN
     Dosage: 8 MILLIGRAM DAILY;
     Dates: start: 20170302
  4. MOXONIDIN HEXAL 0.3 MG [Concomitant]
     Dosage: .6 MILLIGRAM DAILY; IN THE MORNING AND IN THE EVENING
     Dates: start: 20170302
  5. ESIDRIX [Concomitant]
     Active Substance: HYDROCHLOROTHIAZIDE
  6. XARELTO [Concomitant]
     Active Substance: RIVAROXABAN
     Dates: start: 20170302
  7. AMIODARON-RATIOPHARM 200 MG TABLETTEN [Suspect]
     Active Substance: AMIODARONE
     Route: 048
     Dates: start: 201703
  8. NEBILET [Concomitant]
     Active Substance: NEBIVOLOL
     Dosage: IN THE MORNING AND IN THE EVENING
  9. PLADIX [Concomitant]

REACTIONS (3)
  - Abdominal pain [Not Recovered/Not Resolved]
  - Haematochezia [Unknown]
  - Gastrointestinal pain [Not Recovered/Not Resolved]

NARRATIVE: CASE EVENT DATE: 201703
